FAERS Safety Report 11855281 (Version 2)
Quarter: 2016Q1

REPORT INFORMATION
  Report Type: Report from Study
  Country: PL (occurrence: PL)
  Receive Date: 20151221
  Receipt Date: 20160106
  Transmission Date: 20160526
  Serious: Yes (Hospitalization)
  Sender: FDA-Public Use
  Company Number: PHHY2015PL163423

PATIENT
  Age: 65 Year

DRUGS (1)
  1. EVEROLIMUS [Suspect]
     Active Substance: EVEROLIMUS
     Indication: PRODUCT USED FOR UNKNOWN INDICATION
     Route: 065
     Dates: start: 201411

REACTIONS (11)
  - Pain in extremity [Unknown]
  - Blood creatinine increased [Unknown]
  - Oral pain [Unknown]
  - Malaise [Unknown]
  - Constipation [Unknown]
  - Sleep disorder [Unknown]
  - Renal impairment [Unknown]
  - Haemoglobin decreased [Unknown]
  - Disease progression [Unknown]
  - Tachyarrhythmia [Unknown]
  - Blood lactate dehydrogenase increased [Unknown]
